FAERS Safety Report 9617371 (Version 1)
Quarter: 2013Q4

REPORT INFORMATION
  Report Type: Spontaneous
  Country: US (occurrence: US)
  Receive Date: 20131011
  Receipt Date: 20131011
  Transmission Date: 20140711
  Serious: Yes (Other)
  Sender: FDA-Public Use
  Company Number: US-AMGEN-USASP2013071408

PATIENT
  Sex: Female

DRUGS (2)
  1. ENBREL [Suspect]
     Indication: ANKYLOSING SPONDYLITIS
     Dosage: 50 MG, QWK
     Route: 065
     Dates: start: 2004
  2. TYLENOL                            /00020001/ [Concomitant]
     Dosage: UNK UNK, AS NECESSARY

REACTIONS (2)
  - Caesarean section [Recovered/Resolved]
  - Post procedural haemorrhage [Unknown]
